FAERS Safety Report 7505193-5 (Version None)
Quarter: 2011Q2

REPORT INFORMATION
  Report Type: 
  Country: None (occurrence: None)
  Receive Date: 20110526
  Receipt Date: 20110512
  Transmission Date: 20111010
  Serious: Yes (Death)
  Sender: FDA-Public Use
  Company Number: SE-JNJFOC-20110104454

PATIENT
  Sex: Male

DRUGS (3)
  1. REMICADE [Suspect]
     Route: 042
     Dates: start: 20091202
  2. REMICADE [Suspect]
     Indication: DRUG EXPOSURE DURING PREGNANCY
     Route: 042
     Dates: start: 20091217
  3. REMICADE [Suspect]
     Route: 042
     Dates: start: 20100114

REACTIONS (2)
  - CONGENITAL ENDOCRINE ANOMALY [None]
  - PREMATURE BABY [None]
